FAERS Safety Report 16061053 (Version 1)
Quarter: 2019Q1

REPORT INFORMATION
  Report Type: Spontaneous
  Country: US (occurrence: US)
  Receive Date: 20190312
  Receipt Date: 20190312
  Transmission Date: 20190418
  Serious: Yes (Other)
  Sender: FDA-Public Use
  Company Number: US-ROCHE-2106810

PATIENT
  Age: 77 Year
  Sex: Male
  Weight: 78 kg

DRUGS (4)
  1. AVASTIN [Suspect]
     Active Substance: BEVACIZUMAB
     Indication: COLORECTAL CANCER
     Route: 065
     Dates: start: 20171010, end: 20180402
  2. FLUOROURACIL. [Concomitant]
     Active Substance: FLUOROURACIL
  3. OXALIPLATIN. [Concomitant]
     Active Substance: OXALIPLATIN
  4. FOLINIC ACID [Concomitant]
     Active Substance: LEUCOVORIN

REACTIONS (1)
  - Large intestine perforation [Recovering/Resolving]

NARRATIVE: CASE EVENT DATE: 20180404
